FAERS Safety Report 5720907-2 (Version None)
Quarter: 2008Q2

REPORT INFORMATION
  Report Type: 
  Country: None (occurrence: None)
  Receive Date: 20080423
  Receipt Date: 20071101
  Transmission Date: 20081010
  Serious: Yes (Hospitalization)
  Sender: FDA-Public Use
  Company Number: 248649

PATIENT
  Age: 78 Year
  Sex: Female
  Weight: 47.6 kg

DRUGS (2)
  1. AVASTIN [Suspect]
     Indication: LUNG ADENOCARCINOMA
     Dosage: 250 MG, Q2W, INTRAVENOUS
     Route: 042
     Dates: start: 20070227, end: 20070919
  2. TAXOL [Concomitant]

REACTIONS (1)
  - HAEMOPTYSIS [None]
